FAERS Safety Report 4576536-X (Version None)
Quarter: 2005Q1

REPORT INFORMATION
  Report Type: 
  Country: None (occurrence: None)
  Receive Date: 20050119
  Receipt Date: 20040511
  Transmission Date: 20050727
  Serious: Yes (Hospitalization)
  Sender: FDA-Public Use
  Company Number: A03200401506

PATIENT
  Age: 50 Year
  Sex: Male

DRUGS (10)
  1. PLAVIX [Suspect]
     Indication: CORONARY ANGIOPLASTY
     Dosage: 75 MG QD - ORAL
     Route: 048
     Dates: start: 20040205, end: 20040428
  2. PLAVIX [Suspect]
     Indication: CORONARY ARTERY OCCLUSION
     Dosage: 75 MG QD - ORAL
     Route: 048
     Dates: start: 20040205, end: 20040428
  3. ACETAMINOPHEN AND HYDROCODONE BITARTRATE [Concomitant]
  4. ATENOLOL [Concomitant]
  5. SIMVASTATIN [Concomitant]
  6. OLMESARTAN [Concomitant]
  7. LANSOPRAZOLE [Concomitant]
  8. PAROXETINE HYDROCHLORIDE [Concomitant]
  9. NITROGLYCERIN [Concomitant]
  10. ASPIRIN [Concomitant]

REACTIONS (6)
  - CHEST DISCOMFORT [None]
  - HYPOAESTHESIA [None]
  - INCREASED TENDENCY TO BRUISE [None]
  - PAIN IN EXTREMITY [None]
  - PLATELET COUNT DECREASED [None]
  - PLATELET FUNCTION TEST ABNORMAL [None]
